FAERS Safety Report 5661345-0 (Version None)
Quarter: 2008Q1

REPORT INFORMATION
  Report Type: 
  Country: None (occurrence: None)
  Receive Date: 20080312
  Receipt Date: 20080307
  Transmission Date: 20080703
  Serious: Yes (Death, Other)
  Sender: FDA-Public Use
  Company Number: US-BAYER-200816211NA

PATIENT
  Sex: Male

DRUGS (1)
  1. TRASYLOL [Suspect]
     Indication: AORTIC VALVE REPLACEMENT
     Dates: start: 20061201

REACTIONS (5)
  - DEATH [None]
  - ILL-DEFINED DISORDER [None]
  - INJURY [None]
  - RENAL FAILURE [None]
  - RENAL INJURY [None]
